FAERS Safety Report 10189096 (Version 2)
Quarter: 2014Q2

REPORT INFORMATION
  Report Type: Spontaneous
  Country: GB (occurrence: None)
  Receive Date: 20140520
  Receipt Date: 20140528
  Transmission Date: 20141212
  Serious: Yes (Death, Hospitalization, Other)
  Sender: FDA-Public Use
  Company Number: AUR-APL-2014-05644

PATIENT
  Age: 93 Year
  Sex: Female

DRUGS (2)
  1. ALENDRONIC ACID [Suspect]
     Indication: PRODUCT USED FOR UNKNOWN INDICATION
  2. ASPIRIN [Suspect]
     Indication: PRODUCT USED FOR UNKNOWN INDICATION

REACTIONS (23)
  - Upper gastrointestinal haemorrhage [None]
  - Melaena [None]
  - Aortic stenosis [None]
  - Duodenal ulcer [None]
  - Heyde^s syndrome [None]
  - Gastritis [None]
  - Small intestinal haemorrhage [None]
  - Duodenitis [None]
  - Femoral neck fracture [None]
  - Fall [None]
  - Acquired Von Willebrand^s disease [None]
  - Procedural hypotension [None]
  - Renal failure acute [None]
  - Cardiac failure congestive [None]
  - Pulmonary hypertension [None]
  - Fluid overload [None]
  - Pulmonary oedema [None]
  - Prerenal failure [None]
  - Syncope [None]
  - Mitral valve incompetence [None]
  - Tricuspid valve incompetence [None]
  - Pulmonary valve incompetence [None]
  - General physical health deterioration [None]
